FAERS Safety Report 13419442 (Version 1)
Quarter: 2017Q2

REPORT INFORMATION
  Report Type: Spontaneous
  Country: US (occurrence: US)
  Receive Date: 20170407
  Receipt Date: 20170407
  Transmission Date: 20170830
  Serious: Yes (Other)
  Sender: FDA-Public Use
  Company Number: US-JNJFOC-20161004602

PATIENT
  Sex: Male

DRUGS (2)
  1. RISPERDAL [Suspect]
     Active Substance: RISPERIDONE
     Indication: SCHIZOPHRENIA
     Dosage: VARYING DOSES FROM 0.5 TO 6 MG.
     Route: 048
     Dates: start: 2013
  2. RISPERDAL [Suspect]
     Active Substance: RISPERIDONE
     Indication: SCHIZOPHRENIA
     Dosage: VARYING DOSES FROM 0.5 TO 6 MG.
     Route: 048
     Dates: start: 1998, end: 200705

REACTIONS (3)
  - Weight increased [Unknown]
  - Galactorrhoea [Unknown]
  - Gynaecomastia [Unknown]
